FAERS Safety Report 19700823 (Version 2)
Quarter: 2021Q3

REPORT INFORMATION
  Report Type: Spontaneous
  Country: IT (occurrence: IT)
  Receive Date: 20210813
  Receipt Date: 20210823
  Transmission Date: 20211014
  Serious: Yes (Other)
  Sender: FDA-Public Use
  Company Number: IT-MYLANLABS-2021M1051185

PATIENT
  Age: 35 Year
  Sex: Male

DRUGS (3)
  1. GENTAMICIN. [Suspect]
     Active Substance: GENTAMICIN
     Indication: CUTANEOUS LEISHMANIASIS
     Dosage: UNK
     Route: 065
  2. CIPROFLOXACIN. [Suspect]
     Active Substance: CIPROFLOXACIN
     Indication: CUTANEOUS LEISHMANIASIS
     Dosage: UNK
     Route: 065
  3. FLUCONAZOLE. [Suspect]
     Active Substance: FLUCONAZOLE
     Indication: CUTANEOUS LEISHMANIASIS
     Dosage: 400 MILLIGRAM, QD
     Route: 065

REACTIONS (2)
  - Drug ineffective for unapproved indication [Unknown]
  - Off label use [Unknown]
